FAERS Safety Report 9989095 (Version 2)
Quarter: 2014Q1

REPORT INFORMATION
  Report Type: Report from Study
  Country: US (occurrence: US)
  Receive Date: 20140310
  Receipt Date: 20140310
  Transmission Date: 20141002
  Serious: Yes (Hospitalization)
  Sender: FDA-Public Use
  Company Number: US-ABBVIE-12P-163-0998985-00

PATIENT
  Age: 56 Year
  Sex: Female
  Weight: 83.99 kg

DRUGS (21)
  1. HUMIRA [Suspect]
     Indication: RHEUMATOID ARTHRITIS
     Dates: start: 200712, end: 20111207
  2. METHOTREXATE [Concomitant]
     Indication: RHEUMATOID ARTHRITIS
     Dates: start: 200712, end: 201112
  3. LISINOPRIL [Concomitant]
     Indication: HYPERTENSION
  4. AMLODIPINE [Concomitant]
     Indication: HYPERTENSION
  5. CHLORTHALIDONE [Concomitant]
     Indication: HYPERTENSION
  6. CHLORTHALIDONE [Concomitant]
     Indication: FLUID RETENTION
  7. CRESTOR [Concomitant]
     Indication: BLOOD CHOLESTEROL INCREASED
  8. COREG [Concomitant]
     Indication: HYPERTENSION
  9. LEVOXYL [Concomitant]
     Indication: THYROID DISORDER
  10. LEVOXYL [Concomitant]
     Indication: THYROIDECTOMY
  11. NOVOLOG [Concomitant]
     Indication: DIABETES MELLITUS
  12. LANTUS [Concomitant]
     Indication: DIABETES MELLITUS
  13. TRAMADOL [Concomitant]
     Indication: PAIN
  14. FOLIC ACID [Concomitant]
     Indication: RHEUMATOID ARTHRITIS
  15. FOLIC ACID [Concomitant]
     Indication: VITAMIN SUPPLEMENTATION
  16. ARANESP [Concomitant]
     Indication: ANAEMIA
  17. IRON [Concomitant]
     Indication: IRON DEFICIENCY
  18. AVASTIN [Concomitant]
     Indication: DIABETIC RETINOPATHY
  19. MULTIVITAMIN [Concomitant]
     Indication: VITAMIN SUPPLEMENTATION
  20. ARAVA [Concomitant]
     Indication: RHEUMATOID ARTHRITIS
  21. VITAMIN C [Concomitant]
     Indication: VITAMIN SUPPLEMENTATION

REACTIONS (1)
  - Lung infection [Recovered/Resolved]
